FAERS Safety Report 20376252 (Version 2)
Quarter: 2022Q1

REPORT INFORMATION
  Report Type: Spontaneous
  Country: AU (occurrence: AU)
  Receive Date: 20220125
  Receipt Date: 20220215
  Transmission Date: 20220423
  Serious: Yes (Other)
  Sender: FDA-Public Use
  Company Number: AU-UCBSA-2022002646

PATIENT
  Age: 14 Year
  Sex: Female

DRUGS (2)
  1. KEPPRA [Suspect]
     Active Substance: LEVETIRACETAM
     Indication: Psychogenic seizure
     Dosage: 1500 MILLIGRAM/DAY
     Route: 048
  2. KEPPRA [Suspect]
     Active Substance: LEVETIRACETAM
     Indication: Psychogenic seizure
     Dosage: OPTIMIZED TO A DOSE OF 1500 MILLIGRAM
     Route: 042

REACTIONS (1)
  - Petit mal epilepsy [Unknown]
